FAERS Safety Report 14252288 (Version 2)
Quarter: 2017Q4

REPORT INFORMATION
  Report Type: Spontaneous
  Country: US (occurrence: US)
  Receive Date: 20171205
  Receipt Date: 20171227
  Transmission Date: 20180321
  Serious: Yes (Other)
  Sender: FDA-Public Use
  Company Number: US-BAYER-2017-226757

PATIENT
  Sex: Male

DRUGS (2)
  1. XOFIGO [Suspect]
     Active Substance: RADIUM RA-223 DICHLORIDE
     Dosage: 148.3 KBQ, UNK
     Route: 042
     Dates: start: 201709
  2. XOFIGO [Suspect]
     Active Substance: RADIUM RA-223 DICHLORIDE
     Dosage: 150.3 KBQ, UNK

REACTIONS (12)
  - Craniocerebral injury [None]
  - Platelet count decreased [Not Recovered/Not Resolved]
  - Drug ineffective [None]
  - Weight decreased [None]
  - Mobility decreased [None]
  - Underdose [None]
  - Neutropenia [None]
  - Haemoglobin decreased [None]
  - Dizziness [None]
  - Loss of consciousness [None]
  - Syncope [None]
  - Extra dose administered [None]
